FAERS Safety Report 6288236-9 (Version None)
Quarter: 2009Q3

REPORT INFORMATION
  Report Type: 
  Country: None (occurrence: None)
  Receive Date: 20090729
  Receipt Date: 20090720
  Transmission Date: 20100115
  Serious: Yes (Hospitalization, Other)
  Sender: FDA-Public Use
  Company Number: DE-ASTRAZENECA-2009SE05406

PATIENT
  Age: 20046 Day
  Sex: Female

DRUGS (3)
  1. TAMOXIFEN CITRATE [Suspect]
     Indication: BREAST CANCER
     Route: 048
     Dates: start: 20051107, end: 20081201
  2. ZOLADEX [Concomitant]
     Indication: BREAST CANCER
     Route: 058
     Dates: start: 20051107, end: 20081009
  3. ZOMETA [Concomitant]
     Indication: BREAST CANCER
     Dosage: 4 MG EVERY SIX MONTHS
     Route: 042
     Dates: start: 20051107, end: 20081104

REACTIONS (1)
  - UTERINE DILATION AND CURETTAGE [None]
